FAERS Safety Report 10472552 (Version 4)
Quarter: 2014Q4

REPORT INFORMATION
  Report Type: Spontaneous
  Country: JP (occurrence: JP)
  Receive Date: 20140924
  Receipt Date: 20141113
  Transmission Date: 20150528
  Serious: Yes (Life-Threatening)
  Sender: FDA-Public Use
  Company Number: JP-BEH-2014045228

PATIENT
  Age: 59 Year
  Sex: Male
  Weight: 82 kg

DRUGS (17)
  1. ALL OTHER THERAPEUTIC PRODUCTS [Concomitant]
     Active Substance: UNSPECIFIED INGREDIENT
  2. VOLUVEX SOLUTION [Concomitant]
  3. ESLAX [Concomitant]
     Active Substance: ROCURONIUM BROMIDE
     Route: 042
  4. ALL OTHER THERAPEUTIC PRODUCTS [Concomitant]
     Active Substance: UNSPECIFIED INGREDIENT
     Route: 042
  5. VOLUVEN [Suspect]
     Active Substance: HYDROXYETHYL STARCH 130/0.4
     Indication: VOLUME BLOOD INCREASED
     Route: 042
  6. DROLEPTAN INJECTION [Concomitant]
     Route: 042
  7. XYLOCAINE INJECTION 1% [Concomitant]
     Dosage: XYLOCIANE INJECTION 1%
  8. DIPRIVAN INJECTION [Concomitant]
     Dosage: 400MG / 1HR X 8HR
     Route: 042
  9. ANAESTHETICS, GENERAL [Concomitant]
     Active Substance: UNSPECIFIED INGREDIENT
     Dates: start: 20140806
  10. ANAPEINE [Concomitant]
     Active Substance: ROPIVACAINE HYDROCHLORIDE
     Dosage: ANAPEINE INJECTION 0.75%
  11. MIRACLID INJECTION [Concomitant]
  12. ALBUMINAR [Suspect]
     Active Substance: ALBUMIN (HUMAN)
     Indication: PROCEDURAL HAEMORRHAGE
     Dosage: 1 DF/ 1 DAY
     Route: 041
     Dates: start: 20140806
  13. ALBUMINAR [Suspect]
     Active Substance: ALBUMIN (HUMAN)
     Indication: PROCEDURAL HAEMORRHAGE
     Dosage: 1 DF/ 1 DAY
     Route: 041
     Dates: start: 20140806
  14. UROGRAFIN INJECTION [Suspect]
     Active Substance: DIATRIZOATE MEGLUMINE\DIATRIZOATE SODIUM
     Indication: PANCREATOGRAPHY
     Route: 050
  15. FENTANYL INJECTION [Concomitant]
     Active Substance: FENTANYL
     Route: 042
  16. ATROPINE SULFATE. [Concomitant]
     Active Substance: ATROPINE SULFATE
  17. ANAESTHETICS, LOCAL [Concomitant]
     Active Substance: UNSPECIFIED INGREDIENT
     Dates: start: 20140806

REACTIONS (7)
  - Pruritus [Recovered/Resolved]
  - Nausea [Recovered/Resolved]
  - Hypotension [Recovered/Resolved]
  - Blood pressure decreased [Recovered/Resolved]
  - Erythema [Recovered/Resolved]
  - Flushing [Recovered/Resolved]
  - Anaphylactic shock [Recovered/Resolved]

NARRATIVE: CASE EVENT DATE: 20140806
